FAERS Safety Report 8155795-0 (Version None)
Quarter: 2012Q1

REPORT INFORMATION
  Report Type: 
  Country: None (occurrence: None)
  Receive Date: 20120222
  Receipt Date: 20120215
  Transmission Date: 20120608
  Serious: Yes (Hospitalization, Other)
  Sender: FDA-Public Use
  Company Number: US-AMGEN-USASP2010002703

PATIENT
  Age: 67 Year
  Sex: Female
  Weight: 73.016 kg

DRUGS (13)
  1. INFLUENZA VACCINE [Concomitant]
     Dates: start: 20101010, end: 20101010
  2. GABAPENTIN [Concomitant]
  3. HYDROCHLOROTHIAZIDE [Concomitant]
  4. HUMIRA [Concomitant]
     Indication: RHEUMATOID ARTHRITIS
     Dosage: UNK
     Dates: start: 20100901
  5. LASIX [Concomitant]
     Dosage: UNK
  6. AMLODIPINE [Concomitant]
  7. BUSPAR [Concomitant]
     Dosage: UNK
  8. PROLIA [Suspect]
     Indication: OSTEOPOROSIS POSTMENOPAUSAL
     Dosage: 60 MG, Q6MO
     Route: 058
     Dates: start: 20100922
  9. DIOVAN [Concomitant]
     Indication: HYPERTENSION
  10. CYMBALTA [Concomitant]
  11. POTASSIUM CHLORIDE [Concomitant]
  12. FIORICET [Concomitant]
     Dosage: UNK
  13. DEXILANT [Concomitant]
     Dosage: UNK

REACTIONS (9)
  - OEDEMA PERIPHERAL [None]
  - ELECTROLYTE IMBALANCE [None]
  - PAIN [None]
  - HYPERTENSION [None]
  - MALAISE [None]
  - URINARY TRACT INFECTION [None]
  - MYALGIA [None]
  - PAIN IN EXTREMITY [None]
  - MENINGITIS [None]
